FAERS Safety Report 4487396-X (Version None)
Quarter: 2004Q4

REPORT INFORMATION
  Report Type: 
  Country: None (occurrence: None)
  Receive Date: 20041027
  Receipt Date: 20041018
  Transmission Date: 20050328
  Serious: Yes (Life-Threatening, Hospitalization, Disabling)
  Sender: FDA-Public Use
  Company Number: US-MERCK-0410USA02709

PATIENT
  Sex: Female

DRUGS (3)
  1. VIOXX [Suspect]
     Indication: JOINT SPRAIN
     Route: 048
     Dates: start: 20020101
  2. DEPAKOTE [Concomitant]
     Route: 065
  3. PROZAC [Concomitant]
     Route: 065

REACTIONS (4)
  - CEREBRAL HAEMORRHAGE [None]
  - CORONARY ARTERY ATHEROSCLEROSIS [None]
  - DIFFICULTY IN WALKING [None]
  - MUSCLE SPASMS [None]
